FAERS Safety Report 7250197-3 (Version None)
Quarter: 2011Q1

REPORT INFORMATION
  Report Type: 
  Country: None (occurrence: None)
  Receive Date: 20110128
  Receipt Date: 20101227
  Transmission Date: 20110831
  Serious: Yes (Hospitalization, Other)
  Sender: FDA-Public Use
  Company Number: US-BAYER-201027634NA

PATIENT
  Sex: Female
  Weight: 57 kg

DRUGS (9)
  1. YAZ [Suspect]
     Indication: ORAL CONTRACEPTION
     Route: 048
     Dates: start: 20080201, end: 20080722
  2. OCELLA [Suspect]
     Indication: ORAL CONTRACEPTION
  3. DOXYCYCLINE [Concomitant]
     Dates: start: 20060525
  4. YAZ [Suspect]
     Indication: MENSTRUAL CYCLE MANAGEMENT
  5. YASMIN [Suspect]
     Indication: MENSTRUAL CYCLE MANAGEMENT
     Route: 048
     Dates: start: 20080201, end: 20080722
  6. YASMIN [Suspect]
     Indication: ORAL CONTRACEPTION
  7. OCELLA [Suspect]
     Indication: MENSTRUAL CYCLE MANAGEMENT
     Route: 048
     Dates: start: 20080201, end: 20080722
  8. SEREVENT [Concomitant]
     Indication: ASTHMA
  9. CIPROFLOXACIN [Concomitant]
     Dosage: 0.3 %
     Dates: start: 20070120, end: 20091108

REACTIONS (6)
  - PAIN IN EXTREMITY [None]
  - HYPOAESTHESIA [None]
  - PULMONARY EMBOLISM [None]
  - DEEP VEIN THROMBOSIS [None]
  - DYSPNOEA [None]
  - SWELLING [None]
